FAERS Safety Report 6235586-8 (Version None)
Quarter: 2009Q2

REPORT INFORMATION
  Report Type: 
  Country: None (occurrence: None)
  Receive Date: 20090616
  Receipt Date: 20090603
  Transmission Date: 20091009
  Serious: Yes (Other)
  Sender: FDA-Public Use
  Company Number: 2009AP002249

PATIENT
  Age: 59 Year
  Sex: Female

DRUGS (15)
  1. CLARITHROMYCIN [Suspect]
     Indication: BRONCHITIS
     Dosage: 500 MG;BID
  2. TACROLIMUS [Suspect]
     Indication: IMMUNOSUPPRESSION
     Dosage: 1.5 MG;BID
  3. MYCOPHENOLATE MOFETIL (MYCOPHEMOLATE MOFETIL) [Concomitant]
  4. ATORVASTATIN CALCIUM [Concomitant]
  5. CLOPIDOGREL [Concomitant]
  6. ASPIRIN [Concomitant]
  7. LEVOTHYROXINE SODIUM [Concomitant]
  8. DILTIAZEM [Concomitant]
  9. HYDROCHLOROTHIAZIDE [Concomitant]
  10. QUINAPRIL HCL [Concomitant]
  11. FOLIC ACID [Concomitant]
  12. POTASSIUM CHLORIDE [Concomitant]
  13. CALCIUM CARBONATE (CALCIUM CARBONATE) [Concomitant]
  14. ERGOCALCIFEROL [Concomitant]
  15. GLUCOSAMINE (GLUCOSAMINE) [Concomitant]

REACTIONS (3)
  - DRUG INTERACTION [None]
  - DRUG LEVEL ABOVE THERAPEUTIC [None]
  - NEPHROPATHY TOXIC [None]
